FAERS Safety Report 5502853-2 (Version None)
Quarter: 2007Q4

REPORT INFORMATION
  Report Type: 
  Country: None (occurrence: None)
  Receive Date: 20071031
  Receipt Date: 20071024
  Transmission Date: 20080405
  Serious: Yes (Hospitalization)
  Sender: FDA-Public Use
  Company Number: AR-WYE-H00748407

PATIENT
  Sex: Male
  Weight: 53 kg

DRUGS (3)
  1. SIROLIMUS [Suspect]
     Indication: PROPHYLAXIS AGAINST TRANSPLANT REJECTION
     Route: 048
     Dates: start: 20031128, end: 20071018
  2. SIROLIMUS [Suspect]
     Route: 048
     Dates: start: 20071019
  3. CELLCEPT [Concomitant]
     Indication: PROPHYLAXIS AGAINST TRANSPLANT REJECTION
     Dosage: UNSPECIFIED
     Dates: start: 20031128

REACTIONS (1)
  - CHOLECYSTITIS [None]
